FAERS Safety Report 5762051-4 (Version None)
Quarter: 2008Q2

REPORT INFORMATION
  Report Type: 
  Country: None (occurrence: None)
  Receive Date: 20080603
  Receipt Date: 20080527
  Transmission Date: 20081010
  Serious: Yes (Life-Threatening, Hospitalization)
  Sender: FDA-Public Use
  Company Number: 062-21880-08051460

PATIENT
  Age: 60 Year
  Sex: Female
  Weight: 67 kg

DRUGS (5)
  1. REVLIMID [Suspect]
     Indication: MULTIPLE MYELOMA
     Dosage: 15 MG, ORAL
     Route: 048
  2. DONOR LYMPHOCYTES INFUSION (BLOOD CELLS, PACKED HUMAN) [Concomitant]
  3. VALTREX [Concomitant]
  4. BACTRIM [Concomitant]
  5. FOLIC ACID [Concomitant]

REACTIONS (4)
  - ACUTE GRAFT VERSUS HOST DISEASE [None]
  - BLISTER [None]
  - CONDITION AGGRAVATED [None]
  - RASH [None]
